FAERS Safety Report 22339385 (Version 2)
Quarter: 2023Q2

REPORT INFORMATION
  Report Type: Report from Study
  Country: ES (occurrence: None)
  Receive Date: 20230518
  Receipt Date: 20230531
  Transmission Date: 20230721
  Serious: Yes (Hospitalization)
  Sender: FDA-Public Use
  Company Number: ES-ROCHE-3351120

PATIENT
  Age: 37 Year
  Sex: Female
  Weight: 77 kg

DRUGS (21)
  1. BEVACIZUMAB [Suspect]
     Active Substance: BEVACIZUMAB
     Indication: Cervix cancer metastatic
     Route: 042
     Dates: start: 20221114, end: 20230228
  2. TISOTUMAB VEDOTIN [Suspect]
     Active Substance: TISOTUMAB VEDOTIN
     Indication: Cervix cancer metastatic
     Route: 042
     Dates: start: 20221114, end: 20221227
  3. TISOTUMAB VEDOTIN [Suspect]
     Active Substance: TISOTUMAB VEDOTIN
     Route: 042
     Dates: start: 20230208, end: 20230228
  4. CARBOPLATIN [Suspect]
     Active Substance: CARBOPLATIN
     Indication: Cervix cancer metastatic
     Dosage: 5 AUC
     Route: 065
     Dates: start: 20221114, end: 20221227
  5. CARBOPLATIN [Suspect]
     Active Substance: CARBOPLATIN
     Dosage: 5 AUC
     Route: 065
     Dates: start: 20230208, end: 20230228
  6. PEMBROLIZUMAB [Suspect]
     Active Substance: PEMBROLIZUMAB
     Indication: Cervix cancer metastatic
     Route: 042
     Dates: start: 20221114, end: 20230228
  7. METOCLOPRAMIDE [Concomitant]
     Active Substance: METOCLOPRAMIDE
     Dates: start: 20221120
  8. ONDANSETRON [Concomitant]
     Active Substance: ONDANSETRON
     Dates: start: 20221120
  9. ACETAMINOPHEN [Concomitant]
     Active Substance: ACETAMINOPHEN
     Dates: start: 20221120, end: 20230510
  10. LOPERAMIDE [Concomitant]
     Active Substance: LOPERAMIDE
     Dates: start: 20221120
  11. DEXKETOPROFEN [Concomitant]
     Active Substance: DEXKETOPROFEN
     Dates: start: 20221121
  12. MORPHINE [Concomitant]
     Active Substance: MORPHINE
     Dates: start: 20221121
  13. OMEPRAZOLE [Concomitant]
     Active Substance: OMEPRAZOLE
     Dates: start: 20221121
  14. AQUORAL FORTE [Concomitant]
     Dates: start: 20230117
  15. SODIUM HYALURONATE [Concomitant]
     Active Substance: HYALURONATE SODIUM
     Dates: start: 20230117
  16. VITAMIN A PALMITATE [Concomitant]
     Active Substance: VITAMIN A PALMITATE
     Dates: start: 20230221, end: 20230403
  17. MOXIFLOXACIN [Concomitant]
     Active Substance: MOXIFLOXACIN
     Dates: start: 20230403, end: 20230504
  18. NYSTATIN [Concomitant]
     Active Substance: NYSTATIN
     Dates: start: 20230321
  19. RECUGEL [Concomitant]
     Dates: start: 20230403, end: 20230418
  20. XILINA [Concomitant]
     Dates: start: 20230418
  21. IBUPROFEN [Concomitant]
     Active Substance: IBUPROFEN

REACTIONS (1)
  - Rectal ulcer [Not Recovered/Not Resolved]

NARRATIVE: CASE EVENT DATE: 20230504
